FAERS Safety Report 6529297-9 (Version None)
Quarter: 2010Q1

REPORT INFORMATION
  Report Type: 
  Country: None (occurrence: None)
  Receive Date: 20100107
  Receipt Date: 20091224
  Transmission Date: 20100710
  Serious: Yes (Hospitalization)
  Sender: FDA-Public Use
  Company Number: PHHY2009AU58507

PATIENT
  Sex: Male

DRUGS (1)
  1. CLOZARIL [Suspect]
     Dosage: 200 MG, UNK
     Dates: start: 20040813, end: 20091222

REACTIONS (3)
  - NEUTROPHIL COUNT DECREASED [None]
  - PNEUMONIA [None]
  - WHITE BLOOD CELL COUNT DECREASED [None]
